FAERS Safety Report 4442144-4 (Version None)
Quarter: 2004Q3

REPORT INFORMATION
  Report Type: 
  Country: None (occurrence: None)
  Receive Date: 20040907
  Receipt Date: 20040831
  Transmission Date: 20050211
  Serious: Yes (Death)
  Sender: FDA-Public Use
  Company Number: PHFR2004GB03354

PATIENT
  Age: 76 Year
  Sex: Male

DRUGS (7)
  1. ZOMETA [Suspect]
     Indication: BONE PAIN
     Dosage: 4 MG, ONCE/SINGLE
     Route: 042
     Dates: start: 20040524, end: 20040524
  2. CELECOXIB [Suspect]
     Indication: BONE PAIN
     Dosage: 100 MG, BID
     Route: 048
     Dates: start: 20040414
  3. WARFARIN SODIUM [Concomitant]
     Indication: AORTIC VALVE REPLACEMENT
     Dosage: 1 MG/DAY
     Route: 048
     Dates: start: 20040402
  4. RANITIDINE [Concomitant]
     Dosage: 150 MG, BID
     Route: 048
     Dates: start: 20040414
  5. FLUVASTATIN [Concomitant]
     Indication: MYOCARDIAL ISCHAEMIA
     Dosage: 20 MG/DAY
     Route: 048
     Dates: start: 20030213
  6. RAMIPRIL [Concomitant]
     Indication: MYOCARDIAL ISCHAEMIA
     Dosage: 25 MG/DAY
     Route: 048
     Dates: start: 20020501
  7. THYROXINE [Concomitant]
     Indication: HYPOTHYROIDISM
     Dosage: 25 UG/DAY
     Route: 048
     Dates: start: 20020729

REACTIONS (1)
  - CEREBRAL HAEMORRHAGE [None]
